FAERS Safety Report 8282191-8 (Version None)
Quarter: 2012Q2

REPORT INFORMATION
  Report Type: 
  Country: None (occurrence: None)
  Receive Date: 20120413
  Receipt Date: 20120409
  Transmission Date: 20120825
  Serious: Yes (Hospitalization)
  Sender: FDA-Public Use
  Company Number: DE-BRISTOL-MYERS SQUIBB COMPANY-16509242

PATIENT
  Age: 62 Year
  Weight: 82 kg

DRUGS (20)
  1. RAMIPRIL [Concomitant]
     Dates: start: 20120109
  2. BISOPROLOL FUMARATE [Concomitant]
     Dates: start: 20111213
  3. SIMVASTATIN [Concomitant]
     Dates: start: 20111213
  4. DEXAMETHASONE [Concomitant]
     Dates: start: 20120110, end: 20120228
  5. NALOXONE [Concomitant]
     Dates: start: 20111213
  6. LAFOL [Concomitant]
     Dates: start: 20111213
  7. ONDANSETRON [Concomitant]
     Dates: start: 20120110, end: 20120228
  8. FUROSEMIDE [Concomitant]
     Dates: start: 20120110, end: 20120223
  9. GABAPENTIN [Concomitant]
     Dates: start: 20111213
  10. CISPLATIN [Suspect]
     Indication: NON-SMALL CELL LUNG CANCER
     Dosage: LAST DOSE:23FEB2012
     Route: 042
     Dates: start: 20120110
  11. PEMETREXED DISODIUM [Suspect]
     Indication: NON-SMALL CELL LUNG CANCER
     Dosage: LAST DOSE:23FEB2012
     Route: 042
     Dates: start: 20120110
  12. VITAMIN B-12 [Concomitant]
     Dates: start: 20120109, end: 20120301
  13. OXYCODONE HYDROCHLORIDE [Concomitant]
     Dates: start: 20111216
  14. DIPYRONE TAB [Concomitant]
     Dates: start: 20110501
  15. ASPIRIN [Concomitant]
     Dates: start: 20111213
  16. EMEND [Concomitant]
     Dates: start: 20120110, end: 20120225
  17. MANNITOL [Concomitant]
     Dates: start: 20120110, end: 20120223
  18. ATENOLOL AND CHLORTHALIDONE [Concomitant]
     Dates: start: 20120109
  19. OMEPRAZOLE [Concomitant]
     Dates: start: 20111213
  20. MOVIPREP [Concomitant]
     Dates: start: 20120109

REACTIONS (2)
  - GENERAL PHYSICAL HEALTH DETERIORATION [None]
  - CONSTIPATION [None]
